FAERS Safety Report 5311571-5 (Version None)
Quarter: 2007Q2

REPORT INFORMATION
  Report Type: 
  Country: None (occurrence: None)
  Receive Date: 20070426
  Receipt Date: 20070426
  Transmission Date: 20071010
  Serious: Yes (Other)
  Sender: FDA-Public Use
  Company Number: None

PATIENT
  Age: 58 Year
  Sex: Male
  Weight: 117.4816 kg

DRUGS (17)
  1. LEVETIRACETAM [Suspect]
     Indication: CONVULSION
     Dosage: 1000 MG,BID, PO
     Route: 048
     Dates: start: 20060927, end: 20061104
  2. SIMVASTATIN [Concomitant]
  3. RISPERIDONE [Concomitant]
  4. ALBUTEROL [Concomitant]
  5. CITALOPRAM HYDROBROMIDE [Concomitant]
  6. DIVALPROEX SODIUM [Concomitant]
  7. FOLIC ACID [Concomitant]
  8. HEPARIN [Concomitant]
  9. IPRATROPIUM BROMIDE [Concomitant]
  10. LEVALBUTEROL HCL [Concomitant]
  11. LISINOPRIL [Concomitant]
  12. METFORMIN HCL [Concomitant]
  13. NICOTINE [Concomitant]
  14. OMEPRAZOLE [Concomitant]
  15. PREDNISONE TAB [Concomitant]
  16. PROMETHAZINE [Concomitant]
  17. RISPERIDONE [Concomitant]

REACTIONS (5)
  - ASTHENIA [None]
  - COORDINATION ABNORMAL [None]
  - MEMORY IMPAIRMENT [None]
  - MENTAL STATUS CHANGES [None]
  - SOMNOLENCE [None]
